FAERS Safety Report 10868511 (Version 1)
Quarter: 2015Q1

REPORT INFORMATION
  Report Type: Spontaneous
  Country: US (occurrence: US)
  Receive Date: 20150225
  Receipt Date: 20150225
  Transmission Date: 20150721
  Serious: Yes (Other)
  Sender: FDA-Public Use
  Company Number: US-TEVA-543133USA

PATIENT
  Sex: Female

DRUGS (1)
  1. COPAXONE [Suspect]
     Active Substance: GLATIRAMER ACETATE
     Indication: MULTIPLE SCLEROSIS
     Dosage: UNKNOWN DOSE STRENGTH

REACTIONS (5)
  - Injection site oedema [Unknown]
  - Injection site erythema [Unknown]
  - Multiple sclerosis [Not Recovered/Not Resolved]
  - Injection site urticaria [Unknown]
  - Nuclear magnetic resonance imaging abnormal [Unknown]
